FAERS Safety Report 6672150-0 (Version None)
Quarter: 2010Q2

REPORT INFORMATION
  Report Type: 
  Country: None (occurrence: None)
  Receive Date: 20100407
  Receipt Date: 20100407
  Transmission Date: 20101027
  Serious: Yes (Other)
  Sender: FDA-Public Use
  Company Number: None

PATIENT
  Age: 6 Year
  Sex: Male
  Weight: 22.6799 kg

DRUGS (1)
  1. CHILDREN'S CETIRIZINE HYDROCHLORIDE ALLERGY [Suspect]
     Indication: SEASONAL ALLERGY
     Dosage: 5-10ML ONCE EVERY 24 HRS PO
     Route: 048
     Dates: start: 20100328, end: 20100405

REACTIONS (7)
  - ABNORMAL BEHAVIOUR [None]
  - AGGRESSION [None]
  - CRYING [None]
  - DEPRESSION [None]
  - FALL [None]
  - INCONTINENCE [None]
  - SLEEP TERROR [None]
